FAERS Safety Report 19220045 (Version 3)
Quarter: 2023Q4

REPORT INFORMATION
  Report Type: Report from Study
  Country: US (occurrence: US)
  Receive Date: 20210505
  Receipt Date: 20231221
  Transmission Date: 20240109
  Serious: Yes (Other)
  Sender: FDA-Public Use
  Company Number: US-GW PHARMA-202104USGW02158

PATIENT

DRUGS (2)
  1. EPIDIOLEX [Suspect]
     Active Substance: CANNABIDIOL
     Indication: Product used for unknown indication
     Dosage: 250 MG (SHOULD BE TAKING 350 MG AS ADVISED BY PHYSICIAN, BUT ONLY HAD A SCRIPT FOR 250 MG)
     Route: 048
     Dates: start: 20200122
  2. EPIDIOLEX [Suspect]
     Active Substance: CANNABIDIOL
     Dosage: BID
     Route: 048

REACTIONS (9)
  - Seizure [Recovered/Resolved with Sequelae]
  - Memory impairment [Unknown]
  - Nervousness [Unknown]
  - Fear [Unknown]
  - Disorientation [Unknown]
  - Feeling abnormal [Unknown]
  - Amnesia [Unknown]
  - Incorrect dose administered [Unknown]
  - Circumstance or information capable of leading to medication error [Unknown]

NARRATIVE: CASE EVENT DATE: 20210401
